FAERS Safety Report 7550231-7 (Version None)
Quarter: 2011Q2

REPORT INFORMATION
  Report Type: 
  Country: None (occurrence: None)
  Receive Date: 20110615
  Receipt Date: 20110601
  Transmission Date: 20111010
  Serious: Yes (Other)
  Sender: FDA-Public Use
  Company Number: JP-UCBSA-031722

PATIENT
  Sex: Female
  Weight: 49 kg

DRUGS (5)
  1. ZONISAMIDE [Concomitant]
     Indication: EPILEPSY
  2. ZONISAMIDE [Concomitant]
     Route: 048
     Dates: start: 20101110
  3. GABAPENTIN [Concomitant]
     Indication: EPILEPSY
     Route: 048
     Dates: start: 20101110, end: 20101213
  4. KEPPRA [Suspect]
     Indication: EPILEPSY
     Route: 048
     Dates: start: 20101214
  5. TEGRETOL [Suspect]
     Indication: EPILEPSY
     Route: 048
     Dates: start: 20101110

REACTIONS (3)
  - THREATENED LABOUR [None]
  - DRUG EXPOSURE DURING PREGNANCY [None]
  - CAESAREAN SECTION [None]
